FAERS Safety Report 10678174 (Version 1)
Quarter: 2014Q4

REPORT INFORMATION
  Report Type: Spontaneous
  Country: GB (occurrence: GB)
  Receive Date: 20141229
  Receipt Date: 20141229
  Transmission Date: 20150529
  Serious: Yes (Hospitalization, Disabling, Other)
  Sender: FDA-Public Use
  Company Number: GB-BAYER-2014-188162

PATIENT
  Age: 42 Year
  Sex: Female
  Weight: 72.57 kg

DRUGS (6)
  1. PARACETAMOL [Concomitant]
     Active Substance: ACETAMINOPHEN
  2. CODEINE [Concomitant]
     Active Substance: CODEINE
  3. OXYCODONE [Concomitant]
     Active Substance: OXYCODONE
  4. MOXIFLOXACIN ORAL [Suspect]
     Active Substance: MOXIFLOXACIN
     Indication: INFECTION
     Dosage: 400 MG, QD
     Route: 048
     Dates: start: 20140704, end: 20140904
  5. IBUPROFEN. [Concomitant]
     Active Substance: IBUPROFEN
  6. MOXIFLOXACIN ORAL [Suspect]
     Active Substance: MOXIFLOXACIN
     Indication: THROMBOSIS

REACTIONS (5)
  - Joint swelling [Not Recovered/Not Resolved]
  - Tendon injury [Recovered/Resolved with Sequelae]
  - Peripheral swelling [Not Recovered/Not Resolved]
  - Tendon pain [Not Recovered/Not Resolved]
  - Tendonitis [Not Recovered/Not Resolved]

NARRATIVE: CASE EVENT DATE: 20140716
